FAERS Safety Report 5524366-4 (Version None)
Quarter: 2007Q4

REPORT INFORMATION
  Report Type: 
  Country: None (occurrence: None)
  Receive Date: 20071121
  Receipt Date: 20071113
  Transmission Date: 20080405
  Serious: Yes (Disabling, Other)
  Sender: FDA-Public Use
  Company Number: FR-PFIZER INC-2007096225

PATIENT
  Age: 65 Year
  Sex: Male

DRUGS (1)
  1. TAHOR [Suspect]

REACTIONS (7)
  - ABASIA [None]
  - ABDOMINAL PAIN UPPER [None]
  - BLOOD CREATINE PHOSPHOKINASE INCREASED [None]
  - MUSCLE SPASMS [None]
  - OEDEMA PERIPHERAL [None]
  - TRANSAMINASES INCREASED [None]
  - VISUAL ACUITY REDUCED [None]
